FAERS Safety Report 5003470-3 (Version None)
Quarter: 2006Q2

REPORT INFORMATION
  Report Type: 
  Country: None (occurrence: None)
  Receive Date: 20060516
  Receipt Date: 20060426
  Transmission Date: 20061013
  Serious: Yes (Death)
  Sender: FDA-Public Use
  Company Number: BR-ABBOTT-06P-020-0332055-00

PATIENT
  Age: 60 Year
  Sex: Female

DRUGS (6)
  1. HUMIRA [Suspect]
     Indication: RHEUMATOID ARTHRITIS
     Route: 058
     Dates: start: 20051001, end: 20060412
  2. METHOTREXATE [Concomitant]
     Indication: RHEUMATOID ARTHRITIS
     Route: 048
  3. METHOTREXATE [Concomitant]
     Dates: end: 20060412
  4. DEFLAZACORT [Concomitant]
     Indication: RHEUMATOID ARTHRITIS
  5. ANTI-INFLAMMATORY [Concomitant]
     Indication: PAIN
  6. SERTRALINE [Concomitant]
     Indication: DEPRESSION

REACTIONS (2)
  - RESPIRATORY FAILURE [None]
  - RHEUMATOID FACTOR INCREASED [None]
